FAERS Safety Report 9470414 (Version 1)
Quarter: 2013Q3

REPORT INFORMATION
  Report Type: Spontaneous
  Country: US (occurrence: US)
  Receive Date: 20130822
  Receipt Date: 20130822
  Transmission Date: 20140515
  Serious: No
  Sender: FDA-Public Use
  Company Number: US-SANOFI-AVENTIS-2012SA046384

PATIENT
  Age: 85 Year
  Sex: Male
  Weight: 61 kg

DRUGS (2)
  1. MULTAQ [Suspect]
     Indication: ATRIAL FIBRILLATION
     Route: 048
     Dates: start: 20120102
  2. CALCIUM [Concomitant]

REACTIONS (1)
  - Extra dose administered [Unknown]
